FAERS Safety Report 7594228-X (Version None)
Quarter: 2011Q3

REPORT INFORMATION
  Report Type: 
  Country: None (occurrence: None)
  Receive Date: 20110706
  Receipt Date: 20110622
  Transmission Date: 20111222
  Serious: Yes (Hospitalization)
  Sender: FDA-Public Use
  Company Number: HU-ABBOTT-11P-076-0836217-00

PATIENT
  Sex: Female

DRUGS (2)
  1. COMMERICAL HUMIRA [Concomitant]
     Indication: CROHN'S DISEASE
     Dates: start: 20080715
  2. HUMIRA [Suspect]
     Indication: CROHN'S DISEASE
     Route: 058

REACTIONS (1)
  - CROHN'S DISEASE [None]
